APPROVED DRUG PRODUCT: FAMCICLOVIR
Active Ingredient: FAMCICLOVIR
Strength: 500MG
Dosage Form/Route: TABLET;ORAL
Application: A091480 | Product #003 | TE Code: AB
Applicant: APOTEX INC
Approved: Jul 22, 2011 | RLD: No | RS: No | Type: RX